FAERS Safety Report 23869834 (Version 1)
Quarter: 2024Q2

REPORT INFORMATION
  Report Type: Spontaneous
  Country: GR (occurrence: GR)
  Receive Date: 20240517
  Receipt Date: 20240517
  Transmission Date: 20240716
  Serious: Yes (Hospitalization)
  Sender: FDA-Public Use
  Company Number: None

PATIENT
  Age: 56 Year
  Sex: Female
  Weight: 71 kg

DRUGS (4)
  1. MEDROL [Suspect]
     Active Substance: METHYLPREDNISOLONE
     Indication: Laryngitis
     Dosage: 1/2 TABLET OF 16 MG FOR 3 DAYS AND THEN 1/4 TABLET OF 16MG FOR 3 DAYS
     Route: 048
     Dates: start: 20240410, end: 20240414
  2. CLARITHROMYCIN [Concomitant]
     Active Substance: CLARITHROMYCIN
     Indication: Laryngitis
     Dosage: 1000 MG, 1X/DAY
     Route: 048
     Dates: start: 20240410, end: 20240415
  3. SYMBICORT [Concomitant]
     Active Substance: BUDESONIDE\FORMOTEROL FUMARATE DIHYDRATE
     Indication: Laryngitis
     Dosage: 2 PUFFS DAILY FOR 10 DAYS
     Route: 048
     Dates: start: 20240410, end: 20240419
  4. MONTELUKAST SODIUM [Concomitant]
     Active Substance: MONTELUKAST SODIUM
     Indication: Laryngitis
     Dosage: 10 MG, 1X/DAY
     Route: 048
     Dates: start: 20240410, end: 20240419

REACTIONS (6)
  - Dysphonia [Recovering/Resolving]
  - Gastrooesophageal reflux disease [Recovering/Resolving]
  - Hot flush [Recovering/Resolving]
  - Wheezing [Recovering/Resolving]
  - Dyspnoea [Recovering/Resolving]
  - Off label use [Unknown]

NARRATIVE: CASE EVENT DATE: 20240410
